FAERS Safety Report 23260079 (Version 1)
Quarter: 2023Q4

REPORT INFORMATION
  Report Type: Spontaneous
  Country: US (occurrence: US)
  Receive Date: 20231204
  Receipt Date: 20231204
  Transmission Date: 20240110
  Serious: Yes (Hospitalization)
  Sender: FDA-Public Use
  Company Number: US-JNJFOC-20231149137

PATIENT
  Age: 45 Year
  Sex: Female
  Weight: 103.4 kg

DRUGS (18)
  1. TOPAMAX [Suspect]
     Active Substance: TOPIRAMATE
     Indication: Migraine prophylaxis
     Route: 048
  2. MIFEPRISTONE [Suspect]
     Active Substance: MIFEPRISTONE
     Indication: Cushing^s syndrome
     Dosage: TITRATION DOSE
     Route: 048
     Dates: start: 20190725, end: 201908
  3. MIFEPRISTONE [Suspect]
     Active Substance: MIFEPRISTONE
     Route: 048
     Dates: start: 20190801, end: 20200113
  4. MIFEPRISTONE [Suspect]
     Active Substance: MIFEPRISTONE
     Route: 048
     Dates: start: 20200113, end: 20231011
  5. MIFEPRISTONE [Suspect]
     Active Substance: MIFEPRISTONE
     Route: 048
     Dates: start: 202310
  6. LEVOTHYROXINE SODIUM [Concomitant]
     Active Substance: LEVOTHYROXINE SODIUM
  7. LOSARTAN POTASSIUM [Concomitant]
     Active Substance: LOSARTAN POTASSIUM
  8. LORATADINE [Concomitant]
     Active Substance: LORATADINE
  9. LOSARTAN [Concomitant]
     Active Substance: LOSARTAN
  10. METFORMIN HYDROCHLORIDE [Concomitant]
     Active Substance: METFORMIN HYDROCHLORIDE
  11. MIRENA [Concomitant]
     Active Substance: LEVONORGESTREL
  12. OMEPRAZOLE [Concomitant]
     Active Substance: OMEPRAZOLE
  13. LIRAGLUTIDE [Concomitant]
     Active Substance: LIRAGLUTIDE
  14. VALTREX [Concomitant]
     Active Substance: VALACYCLOVIR HYDROCHLORIDE
  15. SPIRONOLACTONE [Concomitant]
     Active Substance: SPIRONOLACTONE
  16. OZEMPIC [Concomitant]
     Active Substance: SEMAGLUTIDE
  17. XEMBIFY [Concomitant]
     Active Substance: HUMAN IMMUNOGLOBULIN G
  18. HIZENTRA [Concomitant]
     Active Substance: HUMAN IMMUNOGLOBULIN G

REACTIONS (3)
  - Nephrolithiasis [Unknown]
  - Anaemia [Unknown]
  - Haematuria [Unknown]
